FAERS Safety Report 5637821-3 (Version None)
Quarter: 2008Q1

REPORT INFORMATION
  Report Type: 
  Country: None (occurrence: None)
  Receive Date: 20080221
  Receipt Date: 20080210
  Transmission Date: 20080703
  Serious: Yes (Hospitalization)
  Sender: FDA-Public Use
  Company Number: 2008003791

PATIENT
  Age: 51 Year
  Sex: Female

DRUGS (3)
  1. BENADRYL [Suspect]
     Dosage: ORAL
     Route: 048
  2. RISPERDAL [Suspect]
     Dosage: ORAL
     Route: 048
  3. HALDOL SOLUTAB [Suspect]
     Dosage: INTRAMUSCULAR
     Route: 030

REACTIONS (8)
  - AMENORRHOEA [None]
  - BURNING SENSATION [None]
  - HEART RATE INCREASED [None]
  - HYPERHIDROSIS [None]
  - HYPERSENSITIVITY [None]
  - INFERTILITY [None]
  - OEDEMA PERIPHERAL [None]
  - WOUND SECRETION [None]
